FAERS Safety Report 5170413-1 (Version None)
Quarter: 2006Q4

REPORT INFORMATION
  Report Type: 
  Country: None (occurrence: None)
  Receive Date: 20061212
  Receipt Date: 20060828
  Transmission Date: 20070319
  Serious: Yes (Other)
  Sender: FDA-Public Use
  Company Number: US-SANOFI-SYNTHELABO-A03200605398

PATIENT
  Sex: Female
  Weight: 57.6 kg

DRUGS (8)
  1. DYAZIDE [Concomitant]
     Dosage: UNK
     Route: 048
  2. LIPITOR [Concomitant]
     Dosage: UNK
     Route: 048
  3. CLONIDINE [Concomitant]
     Route: 048
  4. ERYTHROMYCIN [Concomitant]
     Dosage: UNK
     Route: 048
  5. AMBIEN [Suspect]
     Indication: INSOMNIA
     Route: 048
     Dates: start: 20060718, end: 20060817
  6. AMBIEN [Suspect]
     Indication: MIGRAINE
     Route: 048
     Dates: start: 20060718, end: 20060817
  7. AMBIEN [Suspect]
     Indication: SINUSITIS
     Route: 048
     Dates: start: 20060718, end: 20060817
  8. IMITREX [Concomitant]
     Dosage: UNK
     Route: 065

REACTIONS (21)
  - ACTIVITIES OF DAILY LIVING IMPAIRED [None]
  - BALANCE DISORDER [None]
  - CONDITION AGGRAVATED [None]
  - CONTUSION [None]
  - DRUG INEFFECTIVE [None]
  - EXCORIATION [None]
  - FACIAL BONES FRACTURE [None]
  - FACIAL PAIN [None]
  - FALL [None]
  - HEAD INJURY [None]
  - HEADACHE [None]
  - JOINT SPRAIN [None]
  - JOINT SWELLING [None]
  - LIGAMENT RUPTURE [None]
  - MEMORY IMPAIRMENT [None]
  - NECK INJURY [None]
  - OEDEMA PERIPHERAL [None]
  - PAIN [None]
  - PARADOXICAL DRUG REACTION [None]
  - PELVIC FRACTURE [None]
  - SOMNOLENCE [None]
